FAERS Safety Report 20088560 (Version 1)
Quarter: 2021Q4

REPORT INFORMATION
  Report Type: Spontaneous
  Country: GB (occurrence: GB)
  Receive Date: 20211119
  Receipt Date: 20211119
  Transmission Date: 20220303
  Serious: Yes (Life-Threatening, Other)
  Sender: FDA-Public Use
  Company Number: GB-MHRA-EYC 00265544

PATIENT
  Age: 44 Year
  Sex: Female
  Weight: 85 kg

DRUGS (2)
  1. MEROPENEM [Suspect]
     Active Substance: MEROPENEM
     Indication: Surgery
     Dosage: 2 GRAM
     Route: 042
     Dates: start: 20211030, end: 20211030
  2. TEICOPLANIN [Suspect]
     Active Substance: TEICOPLANIN
     Indication: Surgery
     Dosage: 800 MILLIGRAM
     Route: 042
     Dates: start: 20211030, end: 20211030

REACTIONS (1)
  - Anaphylactic reaction [Recovered/Resolved]

NARRATIVE: CASE EVENT DATE: 20211030
